FAERS Safety Report 10516796 (Version 2)
Quarter: 2014Q4

REPORT INFORMATION
  Report Type: Spontaneous
  Country: DE (occurrence: DE)
  Receive Date: 20141014
  Receipt Date: 20141222
  Transmission Date: 20150528
  Serious: Yes (Life-Threatening, Other)
  Sender: FDA-Public Use
  Company Number: DE-BRISTOL-MYERS SQUIBB COMPANY-21479803

PATIENT
  Age: 31 Year
  Sex: Female

DRUGS (6)
  1. PROMETHAZINE [Suspect]
     Active Substance: PROMETHAZINE\PROMETHAZINE HYDROCHLORIDE
     Indication: PRODUCT USED FOR UNKNOWN INDICATION
  2. ZOPICLONE [Suspect]
     Active Substance: ZOPICLONE
     Indication: PRODUCT USED FOR UNKNOWN INDICATION
     Dosage: 1 DF, UNK
     Route: 065
  3. OLANZAPINE. [Suspect]
     Active Substance: OLANZAPINE
     Indication: PRODUCT USED FOR UNKNOWN INDICATION
     Dosage: 1 DF, UNK
     Route: 065
  4. MIRTAZAPINE. [Suspect]
     Active Substance: MIRTAZAPINE
     Indication: PRODUCT USED FOR UNKNOWN INDICATION
     Route: 065
  5. ABILIFY [Suspect]
     Active Substance: ARIPIPRAZOLE
     Indication: PRODUCT USED FOR UNKNOWN INDICATION
     Dosage: 1 DF, UNK
     Route: 065
  6. DOXEPIN [Suspect]
     Active Substance: DOXEPIN
     Indication: PRODUCT USED FOR UNKNOWN INDICATION
     Dosage: 100 MG, UNK
     Route: 065

REACTIONS (5)
  - Muscle spasms [Recovered/Resolved]
  - Intentional overdose [Recovered/Resolved]
  - Wound [Recovered/Resolved]
  - Electrocardiogram QT prolonged [Recovered/Resolved]
  - Suicide attempt [Recovered/Resolved]
